FAERS Safety Report 11973043 (Version 1)
Quarter: 2016Q1

REPORT INFORMATION
  Report Type: Spontaneous
  Country: US (occurrence: US)
  Receive Date: 20160128
  Receipt Date: 20160128
  Transmission Date: 20160526
  Serious: Yes (Life-Threatening, Hospitalization, Other)
  Sender: FDA-Public Use
  Company Number: US-ROCHE-1697739

PATIENT
  Age: 49 Year
  Sex: Female
  Weight: 53.12 kg

DRUGS (4)
  1. PERJETA [Suspect]
     Active Substance: PERTUZUMAB
     Indication: BREAST CANCER
     Route: 042
     Dates: start: 20151217, end: 20151217
  2. CARBOPLATIN. [Concomitant]
     Active Substance: CARBOPLATIN
     Indication: BREAST CANCER
     Route: 042
     Dates: start: 20151217, end: 20151217
  3. TAXOTERE [Suspect]
     Active Substance: DOCETAXEL
     Indication: BREAST CANCER
     Route: 042
     Dates: start: 20151217, end: 20151217
  4. HERCEPTIN [Suspect]
     Active Substance: TRASTUZUMAB
     Indication: BREAST CANCER
     Route: 042
     Dates: start: 20151217, end: 20151217

REACTIONS (9)
  - Diarrhoea [Recovered/Resolved]
  - Respiratory failure [Recovered/Resolved]
  - Rash [Recovered/Resolved]
  - Dehydration [Unknown]
  - Acute respiratory distress syndrome [Recovered/Resolved]
  - Febrile neutropenia [Unknown]
  - Mucosal inflammation [Unknown]
  - Stomatitis [Recovered/Resolved]
  - Sepsis [Recovered/Resolved]

NARRATIVE: CASE EVENT DATE: 20151222
